FAERS Safety Report 24651098 (Version 1)
Quarter: 2024Q4

REPORT INFORMATION
  Report Type: Spontaneous
  Country: CA (occurrence: CA)
  Receive Date: 20241122
  Receipt Date: 20241122
  Transmission Date: 20250114
  Serious: Yes (Other)
  Sender: CSL BEHRING
  Company Number: CA-BEH-2024185611

PATIENT
  Age: 67 Year
  Sex: Female

DRUGS (6)
  1. ALBUREX [Suspect]
     Active Substance: ALBUMIN HUMAN
     Indication: Thrombocytopenia
     Dosage: 100 ML (SOLUTION INTRAVENOUS)
     Route: 042
  2. ALBUREX [Suspect]
     Active Substance: ALBUMIN HUMAN
     Indication: Blood albumin abnormal
  3. ALBUREX [Suspect]
     Active Substance: ALBUMIN HUMAN
     Indication: Ascites
  4. CIPROFLOXACIN [Concomitant]
     Active Substance: CIPROFLOXACIN
  5. ERTAPENEM [Concomitant]
     Active Substance: ERTAPENEM
     Dosage: POWDER FOR SOLUTION
     Route: 030
  6. RIFAXIMIN [Concomitant]
     Active Substance: RIFAXIMIN

REACTIONS (12)
  - Dyspnoea [Unknown]
  - Bacterial infection [Unknown]
  - Febrile nonhaemolytic transfusion reaction [Unknown]
  - Oxygen saturation decreased [Unknown]
  - Product contamination [Unknown]
  - Transfusion reaction [Unknown]
  - Transfusion related complication [Unknown]
  - Blood pressure decreased [Unknown]
  - Hypotension [Unknown]
  - Pyrexia [Unknown]
  - Body temperature increased [Unknown]
  - Tachypnoea [Unknown]
